FAERS Safety Report 26074921 (Version 1)
Quarter: 2025Q4

REPORT INFORMATION
  Report Type: Spontaneous
  Country: US (occurrence: US)
  Receive Date: 20251121
  Receipt Date: 20251121
  Transmission Date: 20260118
  Serious: Yes (Other)
  Sender: MERCK SHARP & DOHME LLC
  Company Number: US-009507513-2350138

PATIENT
  Age: 43 Year
  Sex: Female

DRUGS (3)
  1. IMIPENEM [Suspect]
     Active Substance: IMIPENEM
  2. AZITHROMYCIN [Suspect]
     Active Substance: AZITHROMYCIN
  3. LINEZOLID [Suspect]
     Active Substance: LINEZOLID

REACTIONS (3)
  - Mycobacterium abscessus infection [Unknown]
  - Pneumonia [Unknown]
  - Drug intolerance [Unknown]
